FAERS Safety Report 8926216 (Version 2)
Quarter: 2013Q4

REPORT INFORMATION
  Report Type: Spontaneous
  Country: US (occurrence: US)
  Receive Date: 20121126
  Receipt Date: 20131226
  Transmission Date: 20140711
  Serious: Yes (Other)
  Sender: FDA-Public Use
  Company Number: US-BAYER-2012-119874

PATIENT
  Age: 20 Year
  Sex: Female

DRUGS (9)
  1. YAZ [Suspect]
  2. AMOXICILLIN [Concomitant]
     Dosage: 400MG/5M
     Route: 048
  3. DARVOCET-N [Concomitant]
     Dosage: 100/650 MG
     Route: 048
  4. HISTUSSIN HC [Concomitant]
     Dosage: 2-5/2.5,
     Route: 048
  5. NAPROXEN [Concomitant]
     Dosage: 500 MG, UNK
     Route: 048
  6. TRIAMCINOLONE ACETONIDE [Concomitant]
     Route: 061
  7. VANIQA [Concomitant]
     Route: 061
  8. ZITHROMAX [Concomitant]
     Dosage: 250 MG, UNK
     Route: 048
  9. PROPOXYPHENE NAPSYLATE W/ACETAMINOPHENE [Concomitant]
     Dosage: 100/650 MG
     Route: 048

REACTIONS (4)
  - Cholecystectomy [None]
  - Cholecystitis acute [None]
  - Pain [None]
  - Injury [None]
